FAERS Safety Report 7761837-4 (Version None)
Quarter: 2011Q3

REPORT INFORMATION
  Report Type: 
  Country: None (occurrence: None)
  Receive Date: 20110920
  Receipt Date: 20110914
  Transmission Date: 20111222
  Serious: Yes (Life-Threatening, Hospitalization)
  Sender: FDA-Public Use
  Company Number: US-CELGENEUS-163-21880-11091857

PATIENT
  Sex: Male
  Weight: 140.74 kg

DRUGS (9)
  1. ATENOLOL [Concomitant]
     Dosage: 100 MILLIGRAM
     Route: 048
     Dates: start: 20030101
  2. ENALAPRIL MALEATE [Concomitant]
     Dosage: 10 MILLIGRAM
     Route: 048
     Dates: start: 20100101
  3. VITAMIN B-12 [Concomitant]
     Dosage: 1000 MILLIGRAM
     Route: 048
     Dates: start: 20110101
  4. GARLIC [Concomitant]
     Dosage: 1 DOSAGE FORMS
     Route: 048
     Dates: start: 20080101
  5. GLYBURIDE [Concomitant]
     Dosage: 3 MILLIGRAM
     Route: 048
     Dates: start: 20050101
  6. ACTOS [Concomitant]
     Dosage: 30 MILLIGRAM
     Route: 048
     Dates: start: 20100101
  7. CALCIUM WITH VITAMIN D [Concomitant]
     Dosage: 600/400
     Route: 048
     Dates: start: 20110101
  8. REVLIMID [Suspect]
     Indication: MULTIPLE MYELOMA
     Dosage: 15 MILLIGRAM
     Route: 048
     Dates: start: 20110823, end: 20110901
  9. ASPIRIN [Concomitant]
     Dosage: 81 MILLIGRAM
     Route: 048
     Dates: start: 20100101

REACTIONS (1)
  - MYOCARDIAL INFARCTION [None]
